FAERS Safety Report 6866777-0 (Version None)
Quarter: 2010Q3

REPORT INFORMATION
  Report Type: 
  Country: None (occurrence: None)
  Receive Date: 20100722
  Receipt Date: 20080328
  Transmission Date: 20110219
  Serious: No
  Sender: FDA-Public Use
  Company Number: PFIZER INC-2008028928

PATIENT
  Sex: Female
  Weight: 79.5 kg

DRUGS (10)
  1. CHANTIX [Suspect]
     Indication: SMOKING CESSATION THERAPY
     Dates: start: 20080303
  2. ANALGESICS [Concomitant]
     Indication: PAIN
     Dates: start: 20080201
  3. ANTIBIOTICS [Concomitant]
     Dates: start: 20080201
  4. PROPOXYPHENE HCL [Concomitant]
  5. CRESTOR [Concomitant]
  6. METOPROLOL [Concomitant]
  7. ASPIRIN [Concomitant]
  8. PENTOXIFYLLINE [Concomitant]
  9. CITALOPRAM HYDROBROMIDE [Concomitant]
  10. TRAZODONE [Concomitant]

REACTIONS (2)
  - CONSTIPATION [None]
  - DYSPEPSIA [None]
